FAERS Safety Report 23452017 (Version 2)
Quarter: 2025Q1

REPORT INFORMATION
  Report Type: Spontaneous
  Country: US (occurrence: US)
  Receive Date: 20240129
  Receipt Date: 20250321
  Transmission Date: 20250409
  Serious: No
  Sender: PFIZER
  Company Number: US-PFIZER INC-PV202400011169

PATIENT
  Age: 59 Year
  Sex: Female

DRUGS (1)
  1. PAXLOVID [Suspect]
     Active Substance: NIRMATRELVIR\RITONAVIR
     Indication: COVID-19 treatment

REACTIONS (9)
  - Headache [Unknown]
  - Insomnia [Unknown]
  - Chest pain [Unknown]
  - Migraine [Unknown]
  - Illness [Unknown]
  - Delusional perception [Unknown]
  - Panic attack [Unknown]
  - Disease recurrence [Unknown]
  - Off label use [Unknown]
